FAERS Safety Report 15839147 (Version 1)
Quarter: 2019Q1

REPORT INFORMATION
  Report Type: Spontaneous
  Country: GB (occurrence: GB)
  Receive Date: 20190117
  Receipt Date: 20190117
  Transmission Date: 20190417
  Serious: Yes (Other)
  Sender: FDA-Public Use
  Company Number: GB-TEVA-2019-GB-999161

PATIENT
  Age: 61 Year
  Sex: Female
  Weight: 75 kg

DRUGS (4)
  1. PARACETAMOL COATED 90% [Concomitant]
  2. ANASTROZOLE. [Concomitant]
     Active Substance: ANASTROZOLE
  3. NITROFURANTOIN. [Suspect]
     Active Substance: NITROFURANTOIN
     Indication: URINARY TRACT INFECTION
     Dosage: 100 MILLIGRAM DAILY;
     Route: 048
     Dates: start: 20181218, end: 20181218
  4. CALCIUM AND VITAMIN D [Concomitant]
     Active Substance: CALCIUM\VITAMIN D

REACTIONS (8)
  - Body temperature decreased [Recovering/Resolving]
  - Nausea [Recovering/Resolving]
  - Skin discolouration [Recovering/Resolving]
  - Presyncope [Recovering/Resolving]
  - Body temperature increased [Recovering/Resolving]
  - Back pain [Recovering/Resolving]
  - Tremor [Recovering/Resolving]
  - Cyanosis [Recovering/Resolving]

NARRATIVE: CASE EVENT DATE: 20181218
